FAERS Safety Report 8373763-0 (Version None)
Quarter: 2012Q2

REPORT INFORMATION
  Report Type: 
  Country: None (occurrence: None)
  Receive Date: 20120521
  Receipt Date: 20120514
  Transmission Date: 20120825
  Serious: Yes (Hospitalization)
  Sender: FDA-Public Use
  Company Number: US-ROCHE-1066409

PATIENT
  Age: 57 Year
  Sex: Female
  Weight: 72.11 kg

DRUGS (9)
  1. BLINDED ALISPORIVIR [Suspect]
     Route: 048
     Dates: start: 20120216
  2. MOTRIN [Concomitant]
     Dates: start: 20110710
  3. PEGASYS [Suspect]
     Indication: HEPATITIS C
     Dates: start: 20110707
  4. BLINDED ALISPORIVIR [Suspect]
     Indication: HEPATITIS C
     Route: 048
     Dates: start: 20110707, end: 20120214
  5. SYNTHROID [Concomitant]
     Dates: start: 20010101, end: 20120212
  6. ADVIL PM [Concomitant]
     Dates: start: 20110710
  7. LISINOPRIL [Concomitant]
     Dates: start: 20111103, end: 20120212
  8. PHENERGAN [Concomitant]
     Dates: start: 20110721
  9. COPEGUS [Suspect]
     Indication: HEPATITIS C
     Dates: start: 20110707

REACTIONS (2)
  - CHOLECYSTITIS [None]
  - CHOLELITHIASIS [None]
